FAERS Safety Report 22986900 (Version 2)
Quarter: 2024Q3

REPORT INFORMATION
  Report Type: Spontaneous
  Country: US (occurrence: US)
  Receive Date: 20230926
  Receipt Date: 20240809
  Transmission Date: 20241016
  Serious: No
  Sender: IMPEL NEUROPHARMA
  Company Number: US-IMPEL PHARMACEUTICALS INC-2023-SPO-TR-0287

PATIENT

DRUGS (2)
  1. TRUDHESA [Suspect]
     Active Substance: DIHYDROERGOTAMINE MESYLATE
     Indication: Product used for unknown indication
     Dosage: UNK
     Route: 045
  2. TRUDHESA [Suspect]
     Active Substance: DIHYDROERGOTAMINE MESYLATE
     Dosage: UNK
     Route: 045

REACTIONS (4)
  - Drug ineffective [Unknown]
  - Nasal congestion [Unknown]
  - Sneezing [Unknown]
  - Headache [Unknown]
